FAERS Safety Report 5721516-1 (Version None)
Quarter: 2008Q2

REPORT INFORMATION
  Report Type: 
  Country: None (occurrence: None)
  Receive Date: 20080429
  Receipt Date: 20080418
  Transmission Date: 20081010
  Serious: Yes (Hospitalization, Other)
  Sender: FDA-Public Use
  Company Number: FR-WYE-H03790308

PATIENT
  Age: 30 Year
  Sex: Female

DRUGS (2)
  1. OROKEN [Suspect]
     Route: 048
     Dates: start: 20080125, end: 20080130
  2. TARDYFERON [Concomitant]
     Dosage: UNKNOWN

REACTIONS (4)
  - ALANINE AMINOTRANSFERASE INCREASED [None]
  - ASPARTATE AMINOTRANSFERASE INCREASED [None]
  - BLOOD ALKALINE PHOSPHATASE INCREASED [None]
  - CHOLESTASIS [None]
